FAERS Safety Report 5423345-5 (Version None)
Quarter: 2007Q3

REPORT INFORMATION
  Report Type: 
  Country: None (occurrence: None)
  Receive Date: 20070730
  Receipt Date: 20070228
  Transmission Date: 20080115
  Serious: Yes (Other)
  Sender: FDA-Public Use
  Company Number: 200710366BWH

PATIENT
  Age: 36 Year
  Sex: Female

DRUGS (2)
  1. AVELOX [Suspect]
     Indication: SINUSITIS
     Dosage: ORAL
     Route: 048
     Dates: start: 20070129, end: 20070101
  2. CLONAZEPAM [Concomitant]

REACTIONS (1)
  - CHEST DISCOMFORT [None]
